FAERS Safety Report 16932623 (Version 1)
Quarter: 2019Q4

REPORT INFORMATION
  Report Type: Spontaneous
  Country: IN (occurrence: IN)
  Receive Date: 20191017
  Receipt Date: 20191017
  Transmission Date: 20200122
  Serious: Yes (Hospitalization)
  Sender: FDA-Public Use
  Company Number: NVSC2019IN001737

PATIENT
  Age: 14 Year
  Sex: Female

DRUGS (14)
  1. SODIUM VALPROATE [Interacting]
     Active Substance: VALPROATE SODIUM
     Dosage: 1400 MG (TREATMENT IN COMBINATION WITH CLONIDINE 250 MCG)
     Route: 065
  2. QUETIAPINE. [Suspect]
     Active Substance: QUETIAPINE
     Indication: EPILEPSY
     Dosage: 400 MG
     Route: 065
  3. LACOSAMIDE. [Concomitant]
     Active Substance: LACOSAMIDE
     Indication: EPILEPSY
     Dosage: UNK
     Route: 065
  4. LITHIUM. [Concomitant]
     Active Substance: LITHIUM
     Dosage: UNK (GRADUALLY TAPERED AND STOPPED)
     Route: 065
  5. SODIUM VALPROATE [Suspect]
     Active Substance: VALPROATE SODIUM
     Indication: EPILEPSY
     Dosage: 20 MG/KG (1G)
     Route: 065
  6. SODIUM VALPROATE [Interacting]
     Active Substance: VALPROATE SODIUM
     Dosage: 25 MG/KG (1400 MG)
     Route: 065
  7. CLOBAZAM. [Concomitant]
     Active Substance: CLOBAZAM
     Indication: EPILEPSY
     Dosage: 10 MG
     Route: 065
  8. SODIUM VALPROATE [Interacting]
     Active Substance: VALPROATE SODIUM
     Dosage: 36 MG/KG (2G, UPTITRATED OVER 3 WEEKS)
     Route: 065
  9. RISPERIDONE. [Concomitant]
     Active Substance: RISPERIDONE
     Dosage: 8 MG (GRADUALLY UPTITRATED)
     Route: 065
  10. CARBAMAZEPINE. [Interacting]
     Active Substance: CARBAMAZEPINE
     Indication: EPILEPSY
     Dosage: 600 MG, QD (10 MG/KG/DAY)
     Route: 065
  11. LITHIUM. [Concomitant]
     Active Substance: LITHIUM
     Dosage: 450 MG
     Route: 065
  12. ARIPIPRAZOLE. [Suspect]
     Active Substance: ARIPIPRAZOLE
     Indication: EPILEPSY
     Dosage: 10 MG
     Route: 065
  13. RISPERIDONE. [Concomitant]
     Active Substance: RISPERIDONE
     Indication: EPILEPSY
     Dosage: UNK
     Route: 065
  14. LITHIUM. [Concomitant]
     Active Substance: LITHIUM
     Indication: EPILEPSY
     Dosage: 600 MG
     Route: 065

REACTIONS (12)
  - Hepatic enzyme increased [Recovered/Resolved]
  - Parkinsonism [Unknown]
  - Mania [Recovered/Resolved]
  - Psychomotor hyperactivity [Unknown]
  - Drug level increased [Recovered/Resolved]
  - Drug ineffective [Unknown]
  - Euphoric mood [Unknown]
  - General physical health deterioration [Unknown]
  - Drug interaction [Unknown]
  - Logorrhoea [Unknown]
  - Hyperammonaemia [Recovered/Resolved]
  - Drug intolerance [Unknown]
